FAERS Safety Report 9648461 (Version 1)
Quarter: 2013Q4

REPORT INFORMATION
  Report Type: Spontaneous
  Country: US (occurrence: None)
  Receive Date: 20131024
  Receipt Date: 20131024
  Transmission Date: 20140711
  Serious: Yes (Other)
  Sender: FDA-Public Use
  Company Number: 2013AP009094

PATIENT
  Age: 3 Year
  Sex: Male

DRUGS (1)
  1. TRAMADOL HYDROCHLORIDE TABLETS [Suspect]
     Dosage: ; PO

REACTIONS (8)
  - Depressed level of consciousness [None]
  - Tongue movement disturbance [None]
  - Vomiting [None]
  - Drug level increased [None]
  - Overdose [None]
  - Protrusion tongue [None]
  - Ataxia [None]
  - Respiration abnormal [None]
